FAERS Safety Report 8675196 (Version 2)
Quarter: 2013Q4

REPORT INFORMATION
  Report Type: Spontaneous
  Country: US (occurrence: US)
  Receive Date: 20120720
  Receipt Date: 20131010
  Transmission Date: 20140711
  Serious: Yes (Other)
  Sender: FDA-Public Use
  Company Number: US-PFIZER INC-2010093727

PATIENT
  Age: 52 Year
  Sex: Female
  Weight: 77.1 kg

DRUGS (2)
  1. LYRICA [Suspect]
     Indication: FIBROMYALGIA
     Dosage: 100 MG, 2X/DAY
     Dates: start: 2005
  2. EFFEXOR [Suspect]
     Indication: DEPRESSION
     Dosage: TWO TABLETS OF 75 MG DAILY
     Route: 048
     Dates: start: 2005

REACTIONS (1)
  - Neoplasm malignant [Unknown]
